FAERS Safety Report 12114853 (Version 3)
Quarter: 2016Q1

REPORT INFORMATION
  Report Type: Spontaneous
  Country: IE (occurrence: IE)
  Receive Date: 20160225
  Receipt Date: 20160315
  Transmission Date: 20160526
  Serious: Yes (Other)
  Sender: FDA-Public Use
  Company Number: ALCN2016IE001521

PATIENT
  Sex: Male

DRUGS (3)
  1. PRED MILD [Suspect]
     Active Substance: PREDNISOLONE ACETATE
     Indication: DRY EYE
     Dosage: 0.12 %, UNK
     Route: 047
     Dates: start: 20160107, end: 20160108
  2. OMEPRAZOLE. [Concomitant]
     Active Substance: OMEPRAZOLE
     Indication: HERNIA
     Route: 048
  3. MAXIDEX [Suspect]
     Active Substance: DEXAMETHASONE
     Indication: DRY EYE
     Dosage: UNK
     Route: 047
     Dates: start: 20160107, end: 20160108

REACTIONS (2)
  - Eye pain [Not Recovered/Not Resolved]
  - Vision blurred [Not Recovered/Not Resolved]
